FAERS Safety Report 8543907-6 (Version None)
Quarter: 2012Q3

REPORT INFORMATION
  Report Type: 
  Country: None (occurrence: None)
  Receive Date: 20120727
  Receipt Date: 20120718
  Transmission Date: 20120928
  Serious: Yes (Death, Disabling)
  Sender: FDA-Public Use
  Company Number: JP-SANOFI-AVENTIS-2012SA042756

PATIENT
  Age: 75 Year
  Sex: Female
  Weight: 44 kg

DRUGS (24)
  1. FLUOROURACIL [Suspect]
     Dosage: 2431.8 MG/M2, DAY1-2
     Route: 041
     Dates: start: 20120326, end: 20120326
  2. AVASTIN [Suspect]
     Indication: LARGE INTESTINE CARCINOMA
     Route: 041
     Dates: start: 20120326, end: 20120326
  3. OXALIPLATIN [Suspect]
     Route: 041
     Dates: start: 20120409, end: 20120409
  4. OXALIPLATIN [Suspect]
     Route: 041
     Dates: start: 20120427, end: 20120427
  5. GRANISETRON [Concomitant]
     Dates: start: 20120326, end: 20120427
  6. FLUOROURACIL [Suspect]
     Route: 041
     Dates: start: 20120409, end: 20120409
  7. FLUOROURACIL [Suspect]
     Route: 040
     Dates: start: 20120427, end: 20120427
  8. ATARAX [Concomitant]
     Dates: start: 20120511, end: 20120511
  9. AVASTIN [Suspect]
     Route: 041
     Dates: start: 20120409, end: 20120409
  10. DEXAMETHASONE SODIUM PHOSPHATE [Concomitant]
     Dates: start: 20120326, end: 20120427
  11. FENTANYL [Concomitant]
     Dates: start: 20120515, end: 20120515
  12. LEUCOVORIN CALCIUM [Suspect]
     Route: 041
     Dates: start: 20120409, end: 20120409
  13. MUCOSTA [Concomitant]
     Dates: start: 20120214, end: 20120515
  14. HALOPERIDOL [Concomitant]
     Dates: start: 20120505, end: 20120511
  15. FLUOROURACIL [Suspect]
     Route: 040
     Dates: start: 20120409, end: 20120409
  16. FLUOROURACIL [Suspect]
     Route: 041
     Dates: start: 20120427, end: 20120427
  17. AVASTIN [Suspect]
     Route: 041
     Dates: start: 20120427, end: 20120427
  18. LEUCOVORIN CALCIUM [Suspect]
     Indication: LARGE INTESTINE CARCINOMA
     Dosage: 206.3 MG/M2
     Route: 041
     Dates: start: 20120326, end: 20120326
  19. FAMOTIDINE [Concomitant]
     Dates: start: 20120508, end: 20120515
  20. LEUCOVORIN CALCIUM [Suspect]
     Route: 041
     Dates: start: 20120427, end: 20120427
  21. SODIUM BICARBONATE [Concomitant]
     Dates: start: 20120515, end: 20120515
  22. OXALIPLATIN [Suspect]
     Indication: LARGE INTESTINE CARCINOMA
     Dosage: 84.7 MG/M2
     Route: 041
     Dates: start: 20120326, end: 20120326
  23. FLUOROURACIL [Suspect]
     Indication: LARGE INTESTINE CARCINOMA
     Dosage: 412.7 MG/M2
     Route: 040
     Dates: start: 20120326, end: 20120326
  24. MIDAZOLAM [Concomitant]
     Dates: start: 20120515, end: 20120515

REACTIONS (5)
  - WHITE BLOOD CELL COUNT DECREASED [None]
  - STOMATITIS [None]
  - RENAL IMPAIRMENT [None]
  - PLATELET COUNT DECREASED [None]
  - NEUTROPHIL COUNT DECREASED [None]
